FAERS Safety Report 8388214-X (Version None)
Quarter: 2012Q2

REPORT INFORMATION
  Report Type: 
  Country: None (occurrence: None)
  Receive Date: 20120525
  Receipt Date: 20120515
  Transmission Date: 20120825
  Serious: Yes (Other)
  Sender: FDA-Public Use
  Company Number: US-ELI_LILLY_AND_COMPANY-US201205006942

PATIENT
  Age: 82 Year
  Sex: Male

DRUGS (3)
  1. HUMALOG [Suspect]
     Dosage: 11 U, PRN
  2. LANTUS [Concomitant]
     Dosage: 40 U, EACH MORNING
  3. LANTUS [Concomitant]
     Dosage: 80 U, EACH MORNING

REACTIONS (1)
  - BLINDNESS [None]
